FAERS Safety Report 5537501-9 (Version None)
Quarter: 2007Q4

REPORT INFORMATION
  Report Type: 
  Country: None (occurrence: None)
  Receive Date: 20071207
  Receipt Date: 20071128
  Transmission Date: 20080405
  Serious: Yes (Hospitalization, Other)
  Sender: FDA-Public Use
  Company Number: US-ELI_LILLY_AND_COMPANY-US200711006432

PATIENT
  Sex: Female
  Weight: 54.421 kg

DRUGS (11)
  1. HUMULIN N [Suspect]
     Dosage: 15 UNK, EACH EVENING
     Dates: start: 20070101
  2. HUMULIN N [Suspect]
     Dosage: 10 UNK, EACH MORNING
     Dates: start: 20070101
  3. HUMULIN N [Suspect]
     Dosage: 40 UNK, EACH EVENING
     Dates: start: 20070101
  4. HUMULIN N [Suspect]
     Dosage: 15 UNK, EACH MORNING
     Dates: start: 20070101
  5. HUMULIN N [Suspect]
     Dosage: 40 U, UNK
     Dates: start: 20071127, end: 20071127
  6. HUMULIN L [Suspect]
     Dosage: 50 UNK, UNK
     Dates: start: 19770101
  7. HUMULIN L [Suspect]
     Dosage: 30 UNK, UNK
     Dates: start: 19770101
  8. GEMFIBROZIL [Concomitant]
  9. STATIN [Concomitant]
  10. LEVEMIR [Concomitant]
  11. LANTUS [Concomitant]

REACTIONS (14)
  - BLINDNESS UNILATERAL [None]
  - BLOOD CHOLESTEROL INCREASED [None]
  - BLOOD GLUCOSE INCREASED [None]
  - BLOOD TRIGLYCERIDES INCREASED [None]
  - BLOOD UREA INCREASED [None]
  - DRUG INEFFECTIVE [None]
  - FALL [None]
  - HYPOACUSIS [None]
  - INTESTINAL OBSTRUCTION [None]
  - MOBILITY DECREASED [None]
  - PANCREATITIS ACUTE [None]
  - RASH [None]
  - VISUAL ACUITY REDUCED [None]
  - VITAMIN D DECREASED [None]
